FAERS Safety Report 4965509-0 (Version None)
Quarter: 2006Q1

REPORT INFORMATION
  Report Type: 
  Country: None (occurrence: None)
  Receive Date: 20060201
  Receipt Date: 20051206
  Transmission Date: 20060701
  Serious: No
  Sender: FDA-Public Use
  Company Number: 2005PV005557

PATIENT
  Sex: Male

DRUGS (2)
  1. BYETTA [Suspect]
     Indication: DIABETES MELLITUS NON-INSULIN-DEPENDENT
     Dosage: 5 MCG; BID; SC
     Route: 058
     Dates: start: 20050101
  2. AVANDIA [Concomitant]

REACTIONS (4)
  - ANAPHYLACTIC REACTION [None]
  - DIARRHOEA [None]
  - SWOLLEN TONGUE [None]
  - URTICARIA [None]
